FAERS Safety Report 11120612 (Version 1)
Quarter: 2015Q2

REPORT INFORMATION
  Report Type: Spontaneous
  Country: US (occurrence: US)
  Receive Date: 20150519
  Receipt Date: 20150519
  Transmission Date: 20150821
  Serious: No
  Sender: FDA-Public Use
  Company Number: US-AMGEN-USASP2015046803

PATIENT
  Age: 60 Year
  Sex: Female

DRUGS (2)
  1. FLOVENT [Concomitant]
     Active Substance: FLUTICASONE PROPIONATE
     Dosage: UNK
  2. ENBREL [Suspect]
     Active Substance: ETANERCEPT
     Indication: PSORIATIC ARTHROPATHY
     Dosage: 50 MG, QWK
     Route: 058
     Dates: start: 201503

REACTIONS (6)
  - Injection site reaction [Unknown]
  - Injection site warmth [Unknown]
  - Injection site haemorrhage [Unknown]
  - Injection site pain [Unknown]
  - Injection site urticaria [Unknown]
  - Injection site discolouration [Unknown]

NARRATIVE: CASE EVENT DATE: 201503
